FAERS Safety Report 5509831-8 (Version None)
Quarter: 2007Q4

REPORT INFORMATION
  Report Type: 
  Country: None (occurrence: None)
  Receive Date: 20071026
  Receipt Date: 20070918
  Transmission Date: 20080405
  Serious: Yes (Death, Hospitalization)
  Sender: FDA-Public Use
  Company Number: CLOF-10670

PATIENT
  Age: 84 Year
  Sex: Female

DRUGS (6)
  1. CLOFARABINE. MFR: GENZYME [Suspect]
     Indication: MYELODYSPLASTIC SYNDROME
     Dosage: 20 MG/M2 QD X 5 PO
     Route: 048
     Dates: start: 20070816, end: 20070820
  2. DIGOXIN [Concomitant]
  3. DILTIAZEM [Concomitant]
  4. MORPHINE [Concomitant]
  5. SERTRALINE [Concomitant]
  6. TEMAZEPAM [Concomitant]

REACTIONS (2)
  - CEREBRAL INFARCTION [None]
  - RESPIRATORY FAILURE [None]
